FAERS Safety Report 18998268 (Version 5)
Quarter: 2023Q4

REPORT INFORMATION
  Report Type: Spontaneous
  Country: US (occurrence: US)
  Receive Date: 20210311
  Receipt Date: 20231005
  Transmission Date: 20240110
  Serious: No
  Sender: FDA-Public Use
  Company Number: US-PFIZER INC-2021177812

PATIENT
  Age: 73 Year
  Sex: Female

DRUGS (1)
  1. XELJANZ [Suspect]
     Active Substance: TOFACITINIB CITRATE
     Indication: Rheumatoid arthritis
     Dosage: 5 MG

REACTIONS (6)
  - Dizziness [Unknown]
  - Memory impairment [Unknown]
  - Visual impairment [Unknown]
  - Drug ineffective [Unknown]
  - Product dose omission in error [Unknown]
  - Off label use [Unknown]
